FAERS Safety Report 6489625-X (Version None)
Quarter: 2009Q4

REPORT INFORMATION
  Report Type: 
  Country: None (occurrence: None)
  Receive Date: 20091210
  Receipt Date: 20091202
  Transmission Date: 20100525
  Serious: Yes (Hospitalization)
  Sender: FDA-Public Use
  Company Number: JP-NOVOPROD-300130

PATIENT
  Age: 55 Year
  Sex: Female
  Weight: 71 kg

DRUGS (6)
  1. PENFILL R CHU [Suspect]
     Indication: TYPE 2 DIABETES MELLITUS
     Dosage: SLIDING SCALE
     Route: 058
     Dates: start: 20090926, end: 20091010
  2. PENFILL N CHU [Suspect]
     Indication: TYPE 2 DIABETES MELLITUS
     Dosage: SLIDING SCALE
     Route: 058
     Dates: start: 20090926, end: 20091010
  3. NOVOLIN R [Suspect]
     Indication: TYPE 2 DIABETES MELLITUS
     Dosage: (6+6+2+0) IU, QD
     Route: 058
     Dates: start: 20091011, end: 20091013
  4. NOVOLIN N [Suspect]
     Indication: TYPE 2 DIABETES MELLITUS
     Dosage: (0+0+0+5) IU, QD
     Dates: start: 20091011, end: 20091012
  5. MAGMITT [Concomitant]
     Dosage: 990 MG, QD
     Route: 048
     Dates: start: 20090926
  6. ALOSENN                            /00476901/ [Concomitant]
     Dosage: 0.5 G, QD
     Dates: start: 20090930

REACTIONS (1)
  - HEPATIC FUNCTION ABNORMAL [None]
